FAERS Safety Report 6603300-X (Version None)
Quarter: 2010Q1

REPORT INFORMATION
  Report Type: 
  Country: None (occurrence: None)
  Receive Date: 20100218
  Receipt Date: 20100202
  Transmission Date: 20100710
  Serious: Yes (Hospitalization, Other)
  Sender: FDA-Public Use
  Company Number: AUR-APL-2010-00350

PATIENT
  Age: 77 Year
  Sex: Male

DRUGS (1)
  1. CIPROFLOXACIN [Suspect]
     Indication: CHOLANGITIS
     Dosage: 400MG- BID- PARENTERAL
     Route: 051

REACTIONS (6)
  - LOSS OF CONSCIOUSNESS [None]
  - SYNCOPE [None]
  - TONIC CLONIC MOVEMENTS [None]
  - TORSADE DE POINTES [None]
  - VENTRICULAR HYPERTROPHY [None]
  - VENTRICULAR TACHYCARDIA [None]
